FAERS Safety Report 10191097 (Version 5)
Quarter: 2014Q3

REPORT INFORMATION
  Report Type: Report from Study
  Country: CA (occurrence: CA)
  Receive Date: 20140523
  Receipt Date: 20140909
  Transmission Date: 20150326
  Serious: Yes (Other)
  Sender: FDA-Public Use
  Company Number: PHHY2013CA089841

PATIENT
  Age: 63 Year
  Sex: Female

DRUGS (1)
  1. ZOMETA [Suspect]
     Active Substance: ZOLEDRONIC ACID
     Indication: BREAST CANCER
     Dosage: 4 MG, EVERY 4 WEEKS
     Route: 042
     Dates: start: 20130709

REACTIONS (10)
  - Tooth disorder [Unknown]
  - Tooth loss [Unknown]
  - Malaise [Not Recovered/Not Resolved]
  - Tooth fracture [Unknown]
  - Cognitive disorder [Unknown]
  - Memory impairment [Unknown]
  - Enamel anomaly [Unknown]
  - Nausea [Unknown]
  - Vomiting [Unknown]
  - Diarrhoea [Unknown]

NARRATIVE: CASE EVENT DATE: 20131121
